FAERS Safety Report 10909357 (Version 1)
Quarter: 2015Q1

REPORT INFORMATION
  Report Type: Spontaneous
  Country: US (occurrence: US)
  Receive Date: 20150312
  Receipt Date: 20150312
  Transmission Date: 20150721
  Serious: No
  Sender: FDA-Public Use
  Company Number: US-SA-2014SA041548

PATIENT
  Age: 28 Year
  Sex: Female
  Weight: 61.68 kg

DRUGS (4)
  1. NASACORT ALLERGY 24HR [Suspect]
     Active Substance: TRIAMCINOLONE ACETONIDE
     Indication: NASAL CONGESTION
     Dosage: DOSE- 1 SPRAY IN EACH NOSTRIL DOSE:1 PUFF(S)
     Route: 045
     Dates: start: 20140326, end: 20140330
  2. NASACORT ALLERGY 24HR [Suspect]
     Active Substance: TRIAMCINOLONE ACETONIDE
     Indication: RHINORRHOEA
     Dosage: DOSE- 1 SPRAY IN EACH NOSTRIL DOSE:1 PUFF(S)
     Route: 045
     Dates: start: 20140326, end: 20140330
  3. IBUPROFEN. [Concomitant]
     Active Substance: IBUPROFEN
     Indication: SWELLING
     Route: 065
  4. NASACORT ALLERGY 24HR [Suspect]
     Active Substance: TRIAMCINOLONE ACETONIDE
     Indication: MULTIPLE ALLERGIES
     Dosage: DOSE- 1 SPRAY IN EACH NOSTRIL DOSE:1 PUFF(S)
     Route: 045
     Dates: start: 20140326, end: 20140330

REACTIONS (5)
  - Pharyngeal hypoaesthesia [Recovered/Resolved]
  - Epistaxis [Recovered/Resolved]
  - Hypoaesthesia oral [Recovered/Resolved]
  - Hypoaesthesia [Recovered/Resolved]
  - Swelling [Recovered/Resolved]
